FAERS Safety Report 10250841 (Version 2)
Quarter: 2014Q3

REPORT INFORMATION
  Report Type: Spontaneous
  Country: US (occurrence: US)
  Receive Date: 20140620
  Receipt Date: 20140703
  Transmission Date: 20150326
  Serious: Yes (Death, Hospitalization, Other)
  Sender: FDA-Public Use
  Company Number: US-AMGEN-USASP2014045335

PATIENT
  Age: 79 Year
  Sex: Female
  Weight: 85.71 kg

DRUGS (1)
  1. PROLIA [Suspect]
     Active Substance: DENOSUMAB
     Indication: OSTEOPOROSIS
     Dosage: UNK
     Route: 065

REACTIONS (5)
  - Cervical vertebral fracture [Unknown]
  - Craniocerebral injury [Unknown]
  - Fall [Fatal]
  - Subdural haematoma [Unknown]
  - Mental status changes [Unknown]

NARRATIVE: CASE EVENT DATE: 201401
